FAERS Safety Report 10222741 (Version 1)
Quarter: 2014Q2

REPORT INFORMATION
  Report Type: Spontaneous
  Country: US (occurrence: US)
  Receive Date: 20140606
  Receipt Date: 20140606
  Transmission Date: 20141212
  Serious: Yes (Other)
  Sender: FDA-Public Use
  Company Number: US-ASTRAZENECA-2014SE38275

PATIENT
  Sex: Female

DRUGS (5)
  1. SYMBICORT PMDI [Suspect]
     Route: 055
  2. B12 SHOT [Concomitant]
     Dosage: GENERIC
  3. FELDENE [Concomitant]
  4. MEDICATION FOR HYPOTHYROIDISM [Concomitant]
  5. CIPRO [Concomitant]

REACTIONS (1)
  - Diplegia [Unknown]
